FAERS Safety Report 9539609 (Version 1)
Quarter: 2013Q2

REPORT INFORMATION
  Report Type: Spontaneous
  Country: US (occurrence: None)
  Receive Date: 20130521
  Receipt Date: 20130521
  Transmission Date: 20140414
  Serious: No
  Sender: FDA-Public Use
  Company Number: 1000042559

PATIENT
  Age: 72 Year
  Sex: Female

DRUGS (5)
  1. TUDORZA PRESSAIR [Suspect]
     Indication: CHRONIC OBSTRUCTIVE PULMONARY DISEASE
     Dosage: 800 UG (400 UG 2 IN 1 D)
     Route: 048
     Dates: start: 201301
  2. BUDESONIDE (BUDESONIDE) (BUDESONIDE) [Concomitant]
  3. PERFOROMIST (FORMOTEROL FUMARATE) (FORMOTEROL FUMARATE) [Concomitant]
  4. BISOPROLOL (BISOPROLOL FUMARATE) (BISOPROLOL FUMARATE) [Concomitant]
  5. ZITHROMAX (AZITHROMYCIN) (AZITHROMYCIN) [Concomitant]

REACTIONS (2)
  - Erythema [None]
  - Skin warm [None]
